FAERS Safety Report 5225296-8 (Version None)
Quarter: 2007Q1

REPORT INFORMATION
  Report Type: 
  Country: None (occurrence: None)
  Receive Date: 20070131
  Receipt Date: 20070129
  Transmission Date: 20070707
  Serious: Yes (Hospitalization)
  Sender: FDA-Public Use
  Company Number: 2007UW01730

PATIENT
  Age: 54 Year
  Sex: Female

DRUGS (9)
  1. SEROQUEL [Suspect]
     Indication: BIPOLAR DISORDER
     Route: 048
  2. TRILEPTAL [Concomitant]
  3. LAMICTAL [Concomitant]
  4. AMITRIPTYLINE HCL [Concomitant]
  5. ATIVAN [Concomitant]
  6. LUNESTA [Concomitant]
  7. LEXAPRO [Concomitant]
  8. PROTONIX [Concomitant]
  9. MULTI-VITAMIN [Concomitant]

REACTIONS (2)
  - ENDOMETRIAL CANCER STAGE I [None]
  - VAGINAL HAEMORRHAGE [None]
